FAERS Safety Report 8198716-7 (Version None)
Quarter: 2012Q1

REPORT INFORMATION
  Report Type: 
  Country: None (occurrence: None)
  Receive Date: 20120309
  Receipt Date: 20120131
  Transmission Date: 20120608
  Serious: No
  Sender: FDA-Public Use
  Company Number: US-AMGEN-USASP2012006393

PATIENT
  Sex: Female

DRUGS (14)
  1. ASCORBIC ACID [Concomitant]
     Dosage: UNK
  2. AZOPT [Concomitant]
     Dosage: UNK
     Dates: start: 20110101, end: 20110101
  3. COSOPT OCUMET.PLUS [Concomitant]
     Dosage: UNK
  4. TRAVATAN EYE DROPS [Concomitant]
     Dosage: UNK
  5. LUMIGAN [Concomitant]
     Dosage: UNK
  6. LINSEED OIL [Concomitant]
     Dosage: UNK
  7. VITAMIN D [Concomitant]
     Dosage: UNK
  8. COQ10 [Concomitant]
     Dosage: UNK
  9. CALCIUM CITRATE [Concomitant]
     Dosage: UNK
  10. B50 COMPLEX [Concomitant]
     Dosage: UNK
  11. TRAVATAN Z [Concomitant]
     Dosage: UNK
  12. PROLIA [Suspect]
     Indication: OSTEOPOROSIS POSTMENOPAUSAL
     Dosage: 60 MG, Q6MO
     Route: 058
     Dates: start: 20101101
  13. HYDROCHLOROTHIAZIDE [Concomitant]
     Dosage: UNK
  14. ALPHAGAN P [Concomitant]
     Dosage: UNK
     Dates: start: 20110101, end: 20120130

REACTIONS (4)
  - LYMPHOCYTE COUNT DECREASED [None]
  - PRURITUS [None]
  - CATARACT [None]
  - FATIGUE [None]
